FAERS Safety Report 6876294-X (Version None)
Quarter: 2010Q3

REPORT INFORMATION
  Report Type: 
  Country: None (occurrence: None)
  Receive Date: 20100727
  Receipt Date: 20100723
  Transmission Date: 20110219
  Serious: Yes (Life-Threatening)
  Sender: FDA-Public Use
  Company Number: B0666848A

PATIENT
  Sex: Male

DRUGS (5)
  1. AUGMENTIN '125' [Suspect]
     Dosage: 500MG SINGLE DOSE
     Route: 048
     Dates: start: 20100201, end: 20100201
  2. ATENOLOL [Concomitant]
     Route: 065
  3. ALLOPURINOL [Concomitant]
     Route: 065
  4. COZAAR [Concomitant]
     Route: 065
  5. RASILEZ [Concomitant]
     Route: 065

REACTIONS (3)
  - ANAPHYLACTIC SHOCK [None]
  - HYPOTENSION [None]
  - MALAISE [None]
